FAERS Safety Report 20382671 (Version 1)
Quarter: 2022Q1

REPORT INFORMATION
  Report Type: Spontaneous
  Country: US (occurrence: US)
  Receive Date: 20220127
  Receipt Date: 20220127
  Transmission Date: 20220423
  Serious: Yes (Other)
  Sender: FDA-Public Use
  Company Number: US-GW PHARMA-202201USGW00314

PATIENT
  Sex: Male
  Weight: 39.9 kg

DRUGS (2)
  1. EPIDIOLEX [Suspect]
     Active Substance: CANNABIDIOL
     Indication: Epilepsy
     Dosage: 25.06 MG/KG/DAY, 500 MILLIGRAM, BID (FIRST SHIPPED ON 29 JAN 2019)
     Route: 048
     Dates: start: 2019
  2. EPIDIOLEX [Suspect]
     Active Substance: CANNABIDIOL
     Indication: Epilepsy

REACTIONS (3)
  - Seizure [Unknown]
  - Prescribed overdose [Unknown]
  - Intentional dose omission [Unknown]
